FAERS Safety Report 21159919 (Version 1)
Quarter: 2022Q3

REPORT INFORMATION
  Report Type: Spontaneous
  Country: US (occurrence: None)
  Receive Date: 20220801
  Receipt Date: 20220801
  Transmission Date: 20221026
  Serious: Yes (Hospitalization)
  Sender: FDA-Public Use
  Company Number: None

PATIENT
  Sex: Female

DRUGS (4)
  1. MYCOPHENOLIC ACID [Suspect]
     Active Substance: MYCOPHENOLIC ACID
     Indication: Renal transplant
     Dosage: EVERY 12 HOURS?
     Route: 048
     Dates: start: 20190130
  2. MYCOPHENOLATE MOFETIL [Concomitant]
     Active Substance: MYCOPHENOLATE MOFETIL
  3. TACROLIMUS [Concomitant]
     Active Substance: TACROLIMUS
  4. TACROLIMUS A [Concomitant]

REACTIONS (6)
  - Infection [None]
  - Diarrhoea [None]
  - Vomiting [None]
  - Cough [None]
  - Nausea [None]
  - Abdominal discomfort [None]
